FAERS Safety Report 6898961-4 (Version None)
Quarter: 2010Q3

REPORT INFORMATION
  Report Type: 
  Country: None (occurrence: None)
  Receive Date: 20100802
  Receipt Date: 20071224
  Transmission Date: 20110219
  Serious: No
  Sender: FDA-Public Use
  Company Number: US-PFIZER INC-2007092708

PATIENT
  Sex: Female
  Weight: 99.5 kg

DRUGS (7)
  1. LYRICA [Suspect]
     Indication: NERVE INJURY
     Route: 048
     Dates: start: 20071018
  2. LYRICA [Suspect]
     Indication: FIBROMYALGIA
  3. LYRICA [Suspect]
     Indication: MYOFASCITIS
  4. LYRICA [Suspect]
     Indication: OSTEOARTHRITIS
  5. LYRICA [Suspect]
     Indication: COMPRESSION FRACTURE
  6. SYNTHROID [Suspect]
     Indication: AUTOIMMUNE THYROIDITIS
     Route: 048
  7. PERCOCET [Concomitant]

REACTIONS (3)
  - DRUG EFFECT DECREASED [None]
  - FLUID RETENTION [None]
  - HYPERTHYROIDISM [None]
